FAERS Safety Report 5687600-6 (Version None)
Quarter: 2008Q1

REPORT INFORMATION
  Report Type: 
  Country: None (occurrence: None)
  Receive Date: 20080328
  Receipt Date: 20061106
  Transmission Date: 20080703
  Serious: No
  Sender: FDA-Public Use
  Company Number: US-BAYER-US-2006-034831

PATIENT
  Age: 38 Year
  Sex: Female
  Weight: 181 kg

DRUGS (4)
  1. MIRENA [Suspect]
     Indication: CONTRACEPTION
     Route: 015
     Dates: start: 20060829
  2. METFORMIN HCL [Concomitant]
     Route: 048
  3. PROZAC [Concomitant]
     Dosage: UNIT DOSE: 40 MG
     Route: 048
  4. ADVIL [Concomitant]
     Indication: ARTHRALGIA

REACTIONS (2)
  - ARTHRALGIA [None]
  - MENORRHAGIA [None]
